FAERS Safety Report 7564205-3 (Version None)
Quarter: 2011Q2

REPORT INFORMATION
  Report Type: 
  Country: None (occurrence: None)
  Receive Date: 20110622
  Receipt Date: 20110607
  Transmission Date: 20111010
  Serious: Yes (Hospitalization)
  Sender: FDA-Public Use
  Company Number: PHHY2011US50785

PATIENT
  Sex: Female

DRUGS (2)
  1. METHOTREXATE [Concomitant]
  2. GLEEVEC [Suspect]
     Indication: WHITE BLOOD CELL DISORDER
     Dosage: 500 MG DAILY
     Route: 048
     Dates: start: 20100526

REACTIONS (8)
  - VARICELLA [None]
  - IMMUNODEFICIENCY [None]
  - TREMOR [None]
  - PYREXIA [None]
  - MUSCLE SPASMS [None]
  - ORAL PAIN [None]
  - HERPES ZOSTER [None]
  - WHITE BLOOD CELL COUNT DECREASED [None]
